FAERS Safety Report 16634072 (Version 5)
Quarter: 2025Q4

REPORT INFORMATION
  Report Type: Spontaneous
  Country: EU (occurrence: EU)
  Receive Date: 20190725
  Receipt Date: 20251009
  Transmission Date: 20260118
  Serious: Yes (Death, Hospitalization, Other)
  Sender: CELLTRION
  Company Number: EU-CELLTRION INC.-2019RO023220

PATIENT

DRUGS (14)
  1. TRASTUZUMAB [Suspect]
     Active Substance: TRASTUZUMAB
     Indication: Metastases to central nervous system
     Dosage: 6 MG/KG, EVERY 3 WEEKS
     Route: 065
     Dates: start: 201501, end: 201706
  2. TRASTUZUMAB [Suspect]
     Active Substance: TRASTUZUMAB
     Indication: Chemotherapy
     Dosage: 3.6 MG/KG, EVERY 3 WEEKS, TRASTUZUMAB EMTANSINE; 3.6 MILLIGRAM/KILOGRAM, 1 DOSE/3 WEEKS; 3.6 MG/KG,
     Route: 065
     Dates: start: 201802
  3. TRASTUZUMAB [Suspect]
     Active Substance: TRASTUZUMAB
     Indication: Breast cancer metastatic
     Dosage: 8 MG/KG, LOADING DOSE EVERY 3 WEEKS
     Route: 042
     Dates: start: 201501, end: 201706
  4. TRASTUZUMAB [Suspect]
     Active Substance: TRASTUZUMAB
     Indication: HER2 positive breast cancer
  5. ZOLEDRONIC ACID [Suspect]
     Active Substance: ZOLEDRONIC ACID
     Indication: Metastases to bone
     Dosage: 4 MG, EVERY 3 WEEKS
  6. CAPECITABINE [Suspect]
     Active Substance: CAPECITABINE
     Indication: Breast cancer
     Dosage: 2000 MG/M2, QD (DAYS 1-14)
     Route: 048
     Dates: start: 201602
  7. CAPECITABINE [Suspect]
     Active Substance: CAPECITABINE
     Indication: Chemotherapy
  8. CAPECITABINE [Suspect]
     Active Substance: CAPECITABINE
     Indication: Metastases to central nervous system
  9. CAPECITABINE [Suspect]
     Active Substance: CAPECITABINE
     Indication: HER2 positive breast cancer
  10. LAPATINIB [Suspect]
     Active Substance: LAPATINIB
     Indication: Metastases to central nervous system
     Dosage: 1250MG, 1 X PER DAY; 1250 MG, QD
     Route: 065
     Dates: start: 201602, end: 201802
  11. LAPATINIB [Suspect]
     Active Substance: LAPATINIB
     Indication: Breast cancer
  12. LAPATINIB [Suspect]
     Active Substance: LAPATINIB
     Indication: HER2 positive breast cancer
  13. PACLITAXEL [Suspect]
     Active Substance: PACLITAXEL
     Indication: HER2 positive breast cancer
     Dosage: EVERY 3 WEEKS; 175MG/M2, Q3W; 175 MG/M2, TIW
     Route: 065
     Dates: end: 201501
  14. ZOLEDRONIC ACID [Suspect]
     Active Substance: ZOLEDRONIC ACID
     Indication: Metastases to bone
     Dosage: 4 MG; EVERY 3 WEEKS; EVERY 3 WEEKS
     Route: 065

REACTIONS (13)
  - Vomiting [Fatal]
  - General physical health deterioration [Fatal]
  - Metastases to central nervous system [Fatal]
  - Neurological decompensation [Fatal]
  - Headache [Fatal]
  - Neoplasm progression [Fatal]
  - Disease progression [Fatal]
  - Breast cancer [Unknown]
  - HER2 positive breast cancer [Unknown]
  - Malignant neoplasm progression [Unknown]
  - Neuropathy peripheral [Unknown]
  - Intentional product use issue [Unknown]
  - Intentional product use issue [Unknown]

NARRATIVE: CASE EVENT DATE: 20150101
